FAERS Safety Report 12387268 (Version 1)
Quarter: 2016Q2

REPORT INFORMATION
  Report Type: Not Available
  Country: PT (occurrence: PT)
  Receive Date: 20160519
  Receipt Date: 20160519
  Transmission Date: 20160815
  Serious: Yes (Hospitalization)
  Sender: FDA-Public Use
  Company Number: PT-ANIPHARMA-2016-PT-000001

PATIENT
  Sex: Male
  Weight: 3.6 kg

DRUGS (2)
  1. ALPRAZOLAM (NON-SPECIFIC) [Suspect]
     Active Substance: ALPRAZOLAM
     Dosage: 0.5 MG DAILY
     Route: 015
  2. VENLAFAXINE [Suspect]
     Active Substance: VENLAFAXINE HYDROCHLORIDE
     Dosage: 75 MG DAILY
     Route: 015

REACTIONS (8)
  - Tachypnoea [Unknown]
  - Mitral valve incompetence [Unknown]
  - Selective eating disorder [Unknown]
  - Tachycardia [Unknown]
  - Cardiomegaly [Unknown]
  - Drug interaction [Unknown]
  - Hepatomegaly [Unknown]
  - Neonatal respiratory distress syndrome [Unknown]
